FAERS Safety Report 13238372 (Version 1)
Quarter: 2017Q1

REPORT INFORMATION
  Report Type: Spontaneous
  Country: US (occurrence: US)
  Receive Date: 20170215
  Receipt Date: 20170215
  Transmission Date: 20170428
  Serious: No
  Sender: FDA-Public Use
  Company Number: None

PATIENT
  Age: 66 Year
  Sex: Male
  Weight: 89.1 kg

DRUGS (8)
  1. CA-MG CITRATE [Concomitant]
  2. TUMERIC [Concomitant]
     Active Substance: TURMERIC
  3. TAMSULOSIN [Concomitant]
     Active Substance: TAMSULOSIN
  4. FOLIC ACID. [Concomitant]
     Active Substance: FOLIC ACID
  5. LISINOPRIL. [Concomitant]
     Active Substance: LISINOPRIL
  6. B1 [Concomitant]
  7. AK-FLUOR [Suspect]
     Active Substance: FLUORESCEIN SODIUM
     Indication: RETINAL DISORDER
     Dosage: ?          QUANTITY:1 INJECTION(S);OTHER FREQUENCY:ONE TIME INJECTION;?
     Route: 042
  8. VITAMIN B12 [Concomitant]
     Active Substance: CYANOCOBALAMIN

REACTIONS (1)
  - Syncope [None]

NARRATIVE: CASE EVENT DATE: 20170215
